FAERS Safety Report 13155540 (Version 1)
Quarter: 2017Q1

REPORT INFORMATION
  Report Type: Spontaneous
  Country: US (occurrence: US)
  Receive Date: 20170126
  Receipt Date: 20170126
  Transmission Date: 20170428
  Serious: Yes (Other)
  Sender: FDA-Public Use
  Company Number: US-BAYER-2017-010912

PATIENT
  Age: 29 Year
  Sex: Female

DRUGS (2)
  1. MIRENA [Suspect]
     Active Substance: LEVONORGESTREL
     Indication: CONTRACEPTION
     Dosage: 20 MCG/24HR, CONT
     Route: 015
  2. MIRENA [Suspect]
     Active Substance: LEVONORGESTREL
     Indication: HORMONE THERAPY

REACTIONS (3)
  - Hemianaesthesia [Not Recovered/Not Resolved]
  - Chemical poisoning [Not Recovered/Not Resolved]
  - Night sweats [Not Recovered/Not Resolved]

NARRATIVE: CASE EVENT DATE: 201612
